FAERS Safety Report 18545415 (Version 2)
Quarter: 2020Q4

REPORT INFORMATION
  Report Type: Spontaneous
  Country: IT (occurrence: IT)
  Receive Date: 20201125
  Receipt Date: 20201230
  Transmission Date: 20210114
  Serious: Yes (Hospitalization)
  Sender: FDA-Public Use
  Company Number: IT-BIOGEN-2020BI00949357

PATIENT
  Age: 47 Year
  Sex: Female
  Weight: 75 kg

DRUGS (3)
  1. TECFIDERA [Suspect]
     Active Substance: DIMETHYL FUMARATE
     Route: 048
     Dates: start: 20200501, end: 20201119
  2. TECFIDERA [Suspect]
     Active Substance: DIMETHYL FUMARATE
     Indication: MULTIPLE SCLEROSIS
     Route: 048
     Dates: start: 202003
  3. LAROXYL [Suspect]
     Active Substance: AMITRIPTYLINE HYDROCHLORIDE
     Indication: DEPRESSION
     Route: 048
     Dates: start: 19960101, end: 20201119

REACTIONS (4)
  - Palpitations [Unknown]
  - Vertigo [Unknown]
  - Extrasystoles [Unknown]
  - Ventricular tachycardia [Unknown]

NARRATIVE: CASE EVENT DATE: 20201114
